FAERS Safety Report 26057593 (Version 1)
Quarter: 2025Q4

REPORT INFORMATION
  Report Type: Spontaneous
  Country: US (occurrence: None)
  Receive Date: 20251118
  Receipt Date: 20251118
  Transmission Date: 20260117
  Serious: No
  Sender: UCB
  Company Number: US-UCBSA-2025051263

PATIENT
  Age: 35 Year

DRUGS (29)
  1. LACOSAMIDE [Suspect]
     Active Substance: LACOSAMIDE
     Indication: Psychomotor hyperactivity
     Dosage: 50 MILLIGRAM, 2X/DAY (BID)
  2. LACOSAMIDE [Suspect]
     Active Substance: LACOSAMIDE
     Indication: Seizure prophylaxis
     Dosage: 50 MILLIGRAM, 2X/DAY (BID)
  3. LACOSAMIDE [Suspect]
     Active Substance: LACOSAMIDE
     Indication: Off label use
  4. COCAINE [Concomitant]
     Active Substance: COCAINE
     Indication: Product used for unknown indication
     Dosage: UNK
  5. CANNABIS SATIVA SUBSP. INDICA TOP [Concomitant]
     Active Substance: CANNABIS SATIVA SUBSP. INDICA TOP
     Indication: Product used for unknown indication
     Dosage: UNK
  6. FENTANYL [Concomitant]
     Active Substance: FENTANYL
     Indication: Sedation
     Dosage: UNK
  7. FENTANYL [Concomitant]
     Active Substance: FENTANYL
     Dosage: 50 MICROGRAM/HR
  8. FENTANYL [Concomitant]
     Active Substance: FENTANYL
     Dosage: 300 MICROGRAM/HR
  9. NALOXONE [Concomitant]
     Active Substance: NALOXONE
     Indication: Product used for unknown indication
     Dosage: UNK, 4 DOSES
  10. ARIPIPRAZOLE [Concomitant]
     Active Substance: ARIPIPRAZOLE
     Indication: Bipolar disorder
     Dosage: UNK
  11. PROPOFOL [Concomitant]
     Active Substance: PROPOFOL
     Indication: Sedation
     Dosage: UNK
  12. LORAZEPAM [Concomitant]
     Active Substance: LORAZEPAM
     Indication: Psychomotor hyperactivity
     Dosage: 2 MILLIGRAM, 2X/DAY (BID)
  13. LORAZEPAM [Concomitant]
     Active Substance: LORAZEPAM
     Indication: Seizure prophylaxis
     Dosage: 1 MILLIGRAM, 2X/DAY (BID)
  14. LORAZEPAM [Concomitant]
     Active Substance: LORAZEPAM
     Dosage: 0.5 MILLIGRAM, 2X/DAY (BID)
  15. QUETIAPINE [Concomitant]
     Active Substance: QUETIAPINE
     Indication: Psychomotor hyperactivity
     Dosage: 50 MILLIGRAM, 3X/DAY (TID)
  16. QUETIAPINE [Concomitant]
     Active Substance: QUETIAPINE
     Indication: Seizure prophylaxis
  17. VANCOMYCIN [Concomitant]
     Active Substance: VANCOMYCIN
     Indication: Pneumonia staphylococcal
     Dosage: UNK
  18. HYDRALAZINE [Concomitant]
     Active Substance: HYDRALAZINE HYDROCHLORIDE
     Indication: Hypertension
     Dosage: UNK
  19. LOSARTAN [Concomitant]
     Active Substance: LOSARTAN
     Indication: Hypertension
  20. LABETALOL [Concomitant]
     Active Substance: LABETALOL
     Indication: Hypertension
  21. DEXMEDETOMIDINE [Concomitant]
     Active Substance: DEXMEDETOMIDINE
     Indication: Hypertension
     Dosage: 0.4 MICROGRAM/HR
  22. DEXMEDETOMIDINE [Concomitant]
     Active Substance: DEXMEDETOMIDINE
     Dosage: 1.4 MICROGRAM/HR
  23. CLONIDINE [Concomitant]
     Active Substance: CLONIDINE
     Indication: Product used for unknown indication
     Dosage: 0.2 MILLIGRAM/24 HRS
  24. CLONIDINE [Concomitant]
     Active Substance: CLONIDINE
     Indication: Product used for unknown indication
     Dosage: 0.1 MILLIGRAM, 4X/DAY (QID)
  25. CLONIDINE [Concomitant]
     Active Substance: CLONIDINE
     Dosage: 0.1 MILLIGRAM, 3X/DAY (TID)
  26. GABAPENTIN [Concomitant]
     Active Substance: GABAPENTIN
     Indication: Pain
     Dosage: 300 MILLIGRAM, 3X/DAY (TID)
  27. GABAPENTIN [Concomitant]
     Active Substance: GABAPENTIN
     Indication: Agitation
  28. LEVETIRACETAM [Concomitant]
     Active Substance: LEVETIRACETAM
     Indication: Psychomotor hyperactivity
  29. BUPRENORPHINE [Concomitant]
     Active Substance: BUPRENORPHINE
     Indication: Prophylaxis
     Dosage: 2 MILLIGRAM, 2X/DAY (BID)

REACTIONS (1)
  - No adverse event [Unknown]
